FAERS Safety Report 8357059-9 (Version None)
Quarter: 2012Q2

REPORT INFORMATION
  Report Type: 
  Country: None (occurrence: None)
  Receive Date: 20120514
  Receipt Date: 20120509
  Transmission Date: 20120825
  Serious: Yes (Death, Hospitalization)
  Sender: FDA-Public Use
  Company Number: ES-PFIZER INC-2007032336

PATIENT
  Age: 77 Year
  Sex: Female

DRUGS (12)
  1. PRILOSEC [Suspect]
     Dosage: UNK
     Dates: start: 20070101
  2. FUROSEMIDE [Suspect]
     Dosage: 40 MG, UNK
     Dates: start: 20060101
  3. SPIRIVA [Concomitant]
     Dosage: UNK
  4. FOSAMAX [Suspect]
     Dosage: 10 MG, UNK
     Route: 048
     Dates: start: 20060101
  5. FELDENE [Suspect]
     Dosage: 20 MG, UNK
     Dates: start: 20060101
  6. PULMICORT [Concomitant]
     Dosage: UNK
  7. VERAPAMIL HCL [Suspect]
     Dosage: 80 MG, UNK
     Dates: start: 20060101
  8. FLUMIL [Concomitant]
     Dosage: UNK
  9. IRON [Concomitant]
     Dosage: UNK
     Route: 048
  10. DEANXIT [Suspect]
     Dosage: 10/0.5 MG
     Route: 048
     Dates: start: 20060101
  11. ASPIRIN [Suspect]
     Dosage: 100 MG, UNK
     Route: 048
     Dates: start: 20060101
  12. CEFUROXIME [Suspect]
     Dosage: 125 MG, UNK
     Dates: start: 20070101

REACTIONS (2)
  - TOXIC EPIDERMAL NECROLYSIS [None]
  - SEPSIS [None]
